APPROVED DRUG PRODUCT: KETOROLAC TROMETHAMINE
Active Ingredient: KETOROLAC TROMETHAMINE
Strength: 15MG/ML
Dosage Form/Route: INJECTABLE;INJECTION
Application: A076209 | Product #001
Applicant: AMPHASTAR PHARMACEUTICAL INC
Approved: Jul 21, 2004 | RLD: No | RS: No | Type: DISCN